FAERS Safety Report 11068561 (Version 1)
Quarter: 2015Q2

REPORT INFORMATION
  Report Type: Spontaneous
  Country: US (occurrence: None)
  Receive Date: 20150424
  Receipt Date: 20150424
  Transmission Date: 20150821
  Serious: No
  Sender: FDA-Public Use
  Company Number: None

PATIENT
  Age: 20 Year
  Sex: Female

DRUGS (1)
  1. GILENYA [Suspect]
     Active Substance: FINGOLIMOD HYDROCHLORIDE
     Indication: MULTIPLE SCLEROSIS
     Route: 048
     Dates: start: 20141201

REACTIONS (7)
  - Fatigue [None]
  - Abdominal pain upper [None]
  - Oropharyngeal pain [None]
  - Anxiety [None]
  - Paraesthesia [None]
  - Headache [None]
  - Hypoaesthesia [None]

NARRATIVE: CASE EVENT DATE: 20150101
